FAERS Safety Report 21910162 (Version 1)
Quarter: 2023Q1

REPORT INFORMATION
  Report Type: Spontaneous
  Country: US (occurrence: US)
  Receive Date: 20230125
  Receipt Date: 20230125
  Transmission Date: 20230417
  Serious: No
  Sender: FDA-Public Use
  Company Number: TU22-1000645

PATIENT
  Sex: Female
  Weight: 54.431 kg

DRUGS (31)
  1. BOTOX [Suspect]
     Active Substance: ONABOTULINUMTOXINA
     Indication: Urinary incontinence
     Dosage: UNK, SINGLE
     Dates: start: 2019, end: 2019
  2. NITROFURANTOIN MONOHYDRATE [Concomitant]
     Active Substance: NITROFURANTOIN MONOHYDRATE
     Indication: Infection prophylaxis
     Dosage: UNK
     Dates: start: 2019, end: 2019
  3. PEPCID [Concomitant]
     Active Substance: FAMOTIDINE
     Indication: Gastrooesophageal reflux disease
  4. TYLENOL WITH CODEINE [Concomitant]
     Active Substance: ACETAMINOPHEN\CODEINE PHOSPHATE
     Indication: Pain
  5. ARTHROTEC [Concomitant]
     Active Substance: DICLOFENAC SODIUM\MISOPROSTOL
     Indication: Inflammation
  6. ARTHROTEC [Concomitant]
     Active Substance: DICLOFENAC SODIUM\MISOPROSTOL
     Indication: Pain
  7. ZALEPLON [Concomitant]
     Active Substance: ZALEPLON
     Indication: Sleep disorder
  8. AMOXICILLIN [Concomitant]
     Active Substance: AMOXICILLIN
     Indication: Knee arthroplasty
  9. DULOXETINE [Concomitant]
     Active Substance: DULOXETINE
     Indication: Pain
  10. PROLIA [Concomitant]
     Active Substance: DENOSUMAB
     Indication: Bone loss
  11. KETOROLAC TROMETHAMINE [Concomitant]
     Active Substance: KETOROLAC TROMETHAMINE
     Indication: Eye irritation
  12. IPRATROPIUM BROMIDE [Concomitant]
     Active Substance: IPRATROPIUM BROMIDE
     Indication: Rhinorrhoea
  13. TRIAMCINOLONE [Concomitant]
     Active Substance: TRIAMCINOLONE
     Indication: Eczema
  14. TACROLIMUS [Concomitant]
     Active Substance: TACROLIMUS
     Indication: Hypersensitivity
  15. ESTRACE [Concomitant]
     Active Substance: ESTRADIOL
  16. VITAMINS NOS [Concomitant]
     Active Substance: VITAMINS
  17. VITAMIN D3 [Concomitant]
     Active Substance: CHOLECALCIFEROL
  18. TUMS [Concomitant]
     Active Substance: CALCIUM CARBONATE
     Indication: Gastrooesophageal reflux disease
  19. METAMUCIL [Concomitant]
     Active Substance: PLANTAGO SEED
  20. ZYRTEC [Concomitant]
     Active Substance: CETIRIZINE HYDROCHLORIDE
  21. IMODIUM [Concomitant]
     Active Substance: LOPERAMIDE HYDROCHLORIDE
  22. OMEGA 3 FISH OIL [FISH OIL] [Concomitant]
     Indication: Dry eye
  23. AQUANIL [SODIUM LAURYL SULFATE] [Concomitant]
  24. CALMOSEPTINE [ZINC OXIDE] [Concomitant]
     Indication: Rash
  25. DICLOFENAC DIETHYLAMINE [Concomitant]
     Active Substance: DICLOFENAC DIETHYLAMINE
     Indication: Musculoskeletal chest pain
  26. SYSTANE FREE [Concomitant]
     Indication: Dry eye
  27. SYSTANE (HYPROMELLOSE 2910 (4000 MPA.S)) [Concomitant]
     Active Substance: HYPROMELLOSE 2910 (4000 MPA.S)
     Indication: Dry eye
  28. HYPOCHLOROUS ACID [Concomitant]
     Active Substance: HYPOCHLOROUS ACID
  29. Calcium citrate petite [Concomitant]
  30. CHLORPHENIRAMINE MALEATE [Concomitant]
     Active Substance: CHLORPHENIRAMINE MALEATE
  31. CREON [Concomitant]
     Active Substance: PANCRELIPASE AMYLASE\PANCRELIPASE LIPASE\PANCRELIPASE PROTEASE

REACTIONS (1)
  - Incorrect route of product administration [Unknown]

NARRATIVE: CASE EVENT DATE: 20190101
